FAERS Safety Report 6290308-X (Version None)
Quarter: 2009Q3

REPORT INFORMATION
  Report Type: 
  Country: None (occurrence: None)
  Receive Date: 20090730
  Receipt Date: 20090310
  Transmission Date: 20100115
  Serious: Yes (Other)
  Sender: FDA-Public Use
  Company Number: US-BRISTOL-MYERS SQUIBB COMPANY-14511638

PATIENT
  Age: 68 Year
  Sex: Male
  Weight: 95 kg

DRUGS (5)
  1. COUMADIN [Suspect]
     Dosage: INCREASED TO 10MG/DAILY.DISCONTINUED, RESTARTED WITH 5 OR 5 1/2 MG/D. 6 1/2MG/D. REDUCED TO 6MG/D.
  2. CRESTOR [Concomitant]
  3. POTASSIUM CHLORIDE [Concomitant]
  4. NEXIUM [Concomitant]
     Indication: ABDOMINAL DISCOMFORT
  5. CLARITIN [Concomitant]

REACTIONS (3)
  - ABDOMINAL DISCOMFORT [None]
  - INTERNATIONAL NORMALISED RATIO INCREASED [None]
  - PERICARDIAL EFFUSION [None]
